FAERS Safety Report 9605074 (Version 2)
Quarter: 2013Q4

REPORT INFORMATION
  Report Type: Spontaneous
  Country: JP (occurrence: JP)
  Receive Date: 20131008
  Receipt Date: 20131008
  Transmission Date: 20140711
  Serious: Yes (Hospitalization)
  Sender: FDA-Public Use
  Company Number: JP-TAKEDA-TCI2013A05433

PATIENT
  Sex: Female

DRUGS (2)
  1. LANSAP 400 [Suspect]
     Dosage: UNK
     Route: 048
     Dates: start: 20130801, end: 20130805
  2. LANSAP [Suspect]
     Indication: HELICOBACTER INFECTION
     Dosage: UNK
     Route: 048
     Dates: start: 20130801, end: 20130805

REACTIONS (1)
  - Enterocolitis haemorrhagic [Recovering/Resolving]
